FAERS Safety Report 24593089 (Version 3)
Quarter: 2024Q4

REPORT INFORMATION
  Report Type: Spontaneous
  Country: US (occurrence: US)
  Receive Date: 20241108
  Receipt Date: 20241120
  Transmission Date: 20250115
  Serious: Yes (Hospitalization, Other)
  Sender: INCYTE
  Company Number: US-INCYTE CORPORATION-2024IN011837

PATIENT

DRUGS (26)
  1. JAKAFI [Suspect]
     Active Substance: RUXOLITINIB
     Indication: Graft versus host disease in skin
     Dosage: 10 MILLIGRAM, BID (1 TABLET IN THE MORNING AND 1 IN THE EVENING)
     Route: 048
  2. AXATILIMAB [Suspect]
     Active Substance: AXATILIMAB
     Indication: Chronic graft versus host disease
     Dosage: 0.3 MILLIGRAM/KILOGRAM Q2 WEEKS
     Route: 042
     Dates: start: 20240906
  3. PROGRAF [Concomitant]
     Active Substance: TACROLIMUS
     Indication: Graft versus host disease in skin
     Dosage: 0.5 MILLIGRAM, BID
     Route: 048
  4. DELTASONE [Concomitant]
     Active Substance: PREDNISONE
     Indication: Graft versus host disease in skin
     Dosage: 15 MILLIGRAM (3X5MG TAB), QD
     Route: 048
  5. RAPAMUNE [Concomitant]
     Active Substance: SIROLIMUS
     Indication: Graft versus host disease in skin
     Dosage: 0.5 MILLIGRAM, QD
     Route: 048
  6. REZUROCK [Concomitant]
     Active Substance: BELUMOSUDIL
     Indication: Graft versus host disease in skin
     Dosage: 200 MILLIGRAM, QD (TAKE WITH A MEAL. SWALLOW WHOLE. DO NOT CUT, CRUSH OR CHEW)
     Route: 048
  7. ZOVIRAX [Concomitant]
     Active Substance: ACYCLOVIR
     Indication: Product used for unknown indication
     Dosage: 400 MILLIGRAM, BID
     Route: 048
  8. VITAMIN D3 [Concomitant]
     Active Substance: CHOLECALCIFEROL
     Indication: Product used for unknown indication
     Dosage: 25 MICROGRAM (1000 UNITS)
     Route: 048
  9. FLEXERIL [Concomitant]
     Active Substance: CYCLOBENZAPRINE HYDROCHLORIDE
     Indication: Muscle spasms
     Dosage: 10 MILLIGRAM, Q8H AS NEEDED
     Route: 048
  10. BENTYL [Concomitant]
     Active Substance: DICYCLOMINE HYDROCHLORIDE
     Indication: Abdominal pain upper
     Dosage: 20 MILLIGRAM (2X20MG CAP), QID AS NEEDED
     Route: 048
  11. CRESEMBA [Concomitant]
     Active Substance: ISAVUCONAZONIUM SULFATE
     Indication: Product used for unknown indication
     Dosage: 372 MILLIGRAM (2X186MG CAP), QD
     Route: 048
  12. REGLAN [Concomitant]
     Active Substance: METOCLOPRAMIDE HYDROCHLORIDE
     Indication: Product used for unknown indication
     Dosage: 10 MILLIGRAM, QID (BEFORE MEALS AND NIGHTLY)
     Route: 048
  13. SODIUM CHLORIDE [Concomitant]
     Active Substance: SODIUM CHLORIDE
     Indication: Product used for unknown indication
     Dosage: 1 GRAM, TID
     Route: 048
  14. BACTRIM DS [Concomitant]
     Active Substance: SULFAMETHOXAZOLE\TRIMETHOPRIM
     Indication: Product used for unknown indication
     Dosage: 800-160MG, 2 TIMES A DAY SATUDAY AND SUNDAY ONLY
     Route: 048
  15. ACYCLOVIR [Concomitant]
     Active Substance: ACYCLOVIR
     Indication: Product used for unknown indication
     Dosage: 400 MILLIGRAM, BID
     Route: 048
  16. BELUMOSUDIL MESILATE [Concomitant]
     Indication: Product used for unknown indication
     Dosage: 200 MILLIGRAM, QD
     Route: 048
  17. CHOLECALCIFEROL [Concomitant]
     Active Substance: CHOLECALCIFEROL
     Indication: Product used for unknown indication
     Dosage: 25 MICROGRAM, QD
     Route: 048
  18. CYCLOBENZAPRINE HYDROCHLORIDE [Concomitant]
     Active Substance: CYCLOBENZAPRINE HYDROCHLORIDE
     Indication: Product used for unknown indication
     Dosage: 10 MILLIGRAM, Q8H PRN
     Route: 048
  19. DEXTROMETHORPHAN HYDROBROMIDE\GUAIFENESIN [Concomitant]
     Active Substance: DEXTROMETHORPHAN HYDROBROMIDE\GUAIFENESIN
     Indication: Product used for unknown indication
     Dosage: 10-100MG/5ML EVERY 6H PRN
     Route: 048
  20. ISAVUCONAZONIUM SULFATE [Concomitant]
     Active Substance: ISAVUCONAZONIUM SULFATE
     Indication: Product used for unknown indication
     Dosage: 372 MILLIGRAM, QD
     Route: 048
  21. LEVOFLOXACIN [Concomitant]
     Active Substance: LEVOFLOXACIN
     Indication: Product used for unknown indication
     Dosage: 750 MILLIGRAM, QD
     Route: 048
  22. METOCLOPRAMIDA HCL [Concomitant]
     Indication: Product used for unknown indication
     Dosage: 10 MILLIGRAM, QID
     Route: 048
  23. PREDNISONE [Concomitant]
     Active Substance: PREDNISONE
     Indication: Product used for unknown indication
     Dosage: 15 MILLIGRAM, QD
     Route: 048
  24. SIROLIMUS [Concomitant]
     Active Substance: SIROLIMUS
     Indication: Product used for unknown indication
     Dosage: 0.5 MILLIGRAM, QD
     Route: 048
  25. SULFAMETHOXAZOLE\TRIMETHOPRIM [Concomitant]
     Active Substance: SULFAMETHOXAZOLE\TRIMETHOPRIM
     Indication: Product used for unknown indication
     Dosage: 800-160MG BID (SAT/SUN ONLY)
     Route: 048
  26. TACROLIMUS [Concomitant]
     Active Substance: TACROLIMUS
     Indication: Product used for unknown indication
     Dosage: 0.5 MILLIGRAM, BID
     Route: 048

REACTIONS (10)
  - Oesophageal stenosis [Unknown]
  - Weight decreased [Unknown]
  - Pneumothorax [Recovered/Resolved]
  - Acute respiratory failure [Not Recovered/Not Resolved]
  - Chylothorax [Not Recovered/Not Resolved]
  - Pneumonia [Not Recovered/Not Resolved]
  - Dyspnoea [Not Recovered/Not Resolved]
  - Lung infiltration [Not Recovered/Not Resolved]
  - Anxiety [Unknown]
  - Pleural effusion [Unknown]

NARRATIVE: CASE EVENT DATE: 20230101
